FAERS Safety Report 6235080-4 (Version None)
Quarter: 2009Q2

REPORT INFORMATION
  Report Type: 
  Country: None (occurrence: None)
  Receive Date: 20090618
  Receipt Date: 20090615
  Transmission Date: 20091009
  Serious: Yes (Death, Other)
  Sender: FDA-Public Use
  Company Number: PHHY2009BR23672

PATIENT
  Sex: Female

DRUGS (7)
  1. GALVUS MET COMBIPACK [Suspect]
     Indication: DIABETES MELLITUS
     Dosage: 2 TABLET OF EACH ACTIVE COMPOUND AT LUNCH N DINNER
     Dates: start: 20070101
  2. EXELON [Suspect]
     Indication: DEMENTIA ALZHEIMER'S TYPE
     Dosage: ONE CAPSULE (1.5 MG) IN FASTING
     Dates: start: 20070101
  3. SERAD [Concomitant]
     Indication: DEPRESSION
     Dosage: 1 DF, QD
     Dates: start: 20070101
  4. GLIBENCLAMIDE [Concomitant]
     Indication: DIABETES MELLITUS
     Dosage: 1 DF, QD
  5. XALATAN [Concomitant]
     Indication: CORNEAL DYSTROPHY
     Dosage: UNK
  6. AAS [Concomitant]
     Indication: CARDIAC DISORDER
     Dosage: UNK
  7. AAS [Concomitant]
     Indication: ANTICOAGULANT THERAPY

REACTIONS (6)
  - ABDOMINAL PAIN [None]
  - CARDIAC FAILURE [None]
  - GASTROINTESTINAL CARCINOMA [None]
  - GASTROINTESTINAL MOTILITY DISORDER [None]
  - GASTROINTESTINAL SURGERY [None]
  - TREATMENT NONCOMPLIANCE [None]
